FAERS Safety Report 5670645-X (Version None)
Quarter: 2008Q1

REPORT INFORMATION
  Report Type: 
  Country: None (occurrence: None)
  Receive Date: 20080313
  Receipt Date: 20080311
  Transmission Date: 20080703
  Serious: Yes (Hospitalization, Other)
  Sender: FDA-Public Use
  Company Number: 2008SP003090

PATIENT
  Age: 80 Year
  Sex: Male
  Weight: 61.6892 kg

DRUGS (9)
  1. TEMOZOLOMIDE [Suspect]
     Indication: ACUTE MYELOID LEUKAEMIA
     Dosage: 350 MG; QD; PO
     Route: 048
     Dates: start: 20080202, end: 20080208
  2. TEMOZOLOMIDE [Suspect]
  3. DILTIAZEM (CON.) [Concomitant]
  4. OMEPRAZOL (CON.) [Concomitant]
  5. SENNA (CON.) [Concomitant]
  6. DULCOLAX (CON.) [Concomitant]
  7. MILK OF MAGNESIA (CON.) [Concomitant]
  8. ALLOPURINOL (CON.) [Concomitant]
  9. KYTRIL (CON.) [Concomitant]

REACTIONS (4)
  - ATRIAL FIBRILLATION [None]
  - FEBRILE NEUTROPENIA [None]
  - HYPOKALAEMIA [None]
  - HYPONATRAEMIA [None]
